FAERS Safety Report 21507032 (Version 1)
Quarter: 2022Q4

REPORT INFORMATION
  Report Type: Spontaneous
  Country: US (occurrence: None)
  Receive Date: 20221025
  Receipt Date: 20221025
  Transmission Date: 20230112
  Serious: Yes (Other)
  Sender: FDA-Public Use
  Company Number: None

PATIENT
  Age: 63 Year
  Sex: Female

DRUGS (1)
  1. PROLIA [Suspect]
     Active Substance: DENOSUMAB
     Indication: Osteoporosis
     Dosage: OTHER FREQUENCY : EVERY6MONTHS;?
     Route: 058
     Dates: start: 20180214

REACTIONS (2)
  - Therapeutic product effect decreased [None]
  - Wrong technique in product usage process [None]

NARRATIVE: CASE EVENT DATE: 20220817
